FAERS Safety Report 4366755-X (Version None)
Quarter: 2004Q2

REPORT INFORMATION
  Report Type: 
  Country: None (occurrence: None)
  Receive Date: 20040528
  Receipt Date: 20040520
  Transmission Date: 20050107
  Serious: Yes (Other)
  Sender: FDA-Public Use
  Company Number: PHBS2004CA06646

PATIENT
  Sex: Male

DRUGS (4)
  1. TRILEPTAL [Suspect]
     Indication: BIPOLAR DISORDER
     Dosage: 150 MG, BID
  2. CARBOLITH [Concomitant]
  3. THYROXINE [Concomitant]
     Dosage: 50 UG, UNK
  4. RISPERDAL [Concomitant]
     Dosage: .25 MG, TID

REACTIONS (1)
  - BLOOD IRON INCREASED [None]
